FAERS Safety Report 6838028-4 (Version None)
Quarter: 2010Q3

REPORT INFORMATION
  Report Type: 
  Country: None (occurrence: None)
  Receive Date: 20100713
  Receipt Date: 20070530
  Transmission Date: 20110219
  Serious: No
  Sender: FDA-Public Use
  Company Number: US-PFIZER INC-2007046119

PATIENT
  Sex: Female
  Weight: 40.8 kg

DRUGS (4)
  1. CHANTIX [Suspect]
     Indication: SMOKING CESSATION THERAPY
     Dates: start: 20070523
  2. SERTRALINE HCL [Interacting]
     Indication: DEPRESSION
  3. EVISTA [Concomitant]
  4. CELEBREX [Concomitant]

REACTIONS (5)
  - DRUG INTERACTION [None]
  - FEELING ABNORMAL [None]
  - MALAISE [None]
  - NAUSEA [None]
  - VISUAL ACUITY REDUCED [None]
